FAERS Safety Report 8416000 (Version 2)
Quarter: 2013Q1

REPORT INFORMATION
  Report Type: Spontaneous
  Country: US (occurrence: US)
  Receive Date: 20120218
  Receipt Date: 20130119
  Transmission Date: 20140127
  Serious: No
  Sender: FDA-Public Use
  Company Number: US-ALLERGAN-1114559US

PATIENT
  Sex: Female

DRUGS (1)
  1. BOTOX COSMETIC [Suspect]
     Indication: SKIN WRINKLING
     Dosage: UNK
     Route: 030
     Dates: start: 20111026, end: 20111026

REACTIONS (4)
  - Cutis laxa [Recovered/Resolved]
  - Mydriasis [Recovered/Resolved]
  - Facial paresis [Recovered/Resolved]
  - Visual impairment [Recovered/Resolved]
